FAERS Safety Report 4621141-X (Version None)
Quarter: 2005Q1

REPORT INFORMATION
  Report Type: 
  Country: None (occurrence: None)
  Receive Date: 20050328
  Receipt Date: 20050309
  Transmission Date: 20050727
  Serious: Yes (Other)
  Sender: FDA-Public Use
  Company Number: 310002M05FRA

PATIENT
  Age: 35 Year
  Sex: Female
  Weight: 40 kg

DRUGS (3)
  1. GONAL-F [Suspect]
     Indication: IN VITRO FERTILISATION
     Dates: start: 20040201
  2. MENOTROPINS [Concomitant]
  3. GONADORELIN INJ [Concomitant]

REACTIONS (9)
  - ASTHENIA [None]
  - CEREBELLAR SYNDROME [None]
  - DEPRESSION [None]
  - EXTRAPYRAMIDAL DISORDER [None]
  - GAIT DISTURBANCE [None]
  - MALAISE [None]
  - MUSCLE SPASTICITY [None]
  - THERAPY NON-RESPONDER [None]
  - WEIGHT DECREASED [None]
